FAERS Safety Report 5704499-X (Version None)
Quarter: 2008Q2

REPORT INFORMATION
  Report Type: 
  Country: None (occurrence: None)
  Receive Date: 20080414
  Receipt Date: 20080401
  Transmission Date: 20081010
  Serious: Yes (Hospitalization)
  Sender: FDA-Public Use
  Company Number: CA-ELI_LILLY_AND_COMPANY-CA200804000453

PATIENT
  Age: 92 Year
  Sex: Female

DRUGS (2)
  1. FORTEO [Suspect]
     Indication: OSTEOPOROSIS
     Dosage: 20 UG, DAILY (1/D)
     Route: 058
     Dates: start: 20071130
  2. OXYCONTIN [Concomitant]

REACTIONS (5)
  - AMNESIA [None]
  - ASTHENIA [None]
  - DEMENTIA [None]
  - FALL [None]
  - MUSCULAR WEAKNESS [None]
